FAERS Safety Report 11062346 (Version 1)
Quarter: 2015Q2

REPORT INFORMATION
  Report Type: Spontaneous
  Country: CA (occurrence: CA)
  Receive Date: 20150424
  Receipt Date: 20150424
  Transmission Date: 20150821
  Serious: Yes (Other)
  Sender: FDA-Public Use
  Company Number: CA-BAYER-2015-153884

PATIENT
  Age: 50 Year
  Sex: Female

DRUGS (4)
  1. ASPIRIN. [Suspect]
     Active Substance: ASPIRIN
     Route: 065
  2. WATER FOR INJECTION [Suspect]
     Active Substance: WATER
     Route: 042
  3. FLOLAN [Suspect]
     Active Substance: EPOPROSTENOL SODIUM
     Dosage: 30000 NG, UNK
     Route: 042
  4. WARFARIN [Suspect]
     Active Substance: WARFARIN
     Route: 042

REACTIONS (2)
  - Ulcer [Unknown]
  - Diarrhoea haemorrhagic [Unknown]
